FAERS Safety Report 8716501 (Version 6)
Quarter: 2013Q3

REPORT INFORMATION
  Report Type: Spontaneous
  Country: US (occurrence: US)
  Receive Date: 20120810
  Receipt Date: 20130923
  Transmission Date: 20140515
  Serious: Yes (Hospitalization, Other)
  Sender: FDA-Public Use
  Company Number: US-009507513-1208USA002538

PATIENT
  Sex: Female
  Weight: 101.13 kg

DRUGS (4)
  1. NUVARING [Suspect]
     Indication: MENSTRUATION IRREGULAR
     Dosage: UNK
     Route: 067
     Dates: start: 20070214, end: 20100901
  2. NUVARING [Suspect]
     Indication: POLYCYSTIC OVARIES
  3. NUVARING [Suspect]
     Indication: MENORRHAGIA
  4. NUVARING [Suspect]
     Indication: CONTRACEPTION

REACTIONS (23)
  - Iron deficiency anaemia [Not Recovered/Not Resolved]
  - Pulmonary embolism [Not Recovered/Not Resolved]
  - Sleep apnoea syndrome [Unknown]
  - Uterine leiomyoma [Unknown]
  - Uterine leiomyoma [Unknown]
  - Small intestinal haemorrhage [Unknown]
  - Pyrexia [Unknown]
  - Incisional drainage [Unknown]
  - Fistula [Recovered/Resolved]
  - Food allergy [Unknown]
  - Incision site pain [Unknown]
  - Headache [Unknown]
  - Weight increased [Unknown]
  - Myomectomy [Unknown]
  - Post procedural fistula [Unknown]
  - Depression [Unknown]
  - Post procedural fistula [Unknown]
  - Colostomy [Unknown]
  - Malnutrition [Unknown]
  - Anxiety [Unknown]
  - Off label use [Unknown]
  - Abscess [Unknown]
  - Tooth infection [Unknown]
